FAERS Safety Report 4472310-3 (Version None)
Quarter: 2004Q4

REPORT INFORMATION
  Report Type: 
  Country: None (occurrence: None)
  Receive Date: 20041007
  Receipt Date: 20040826
  Transmission Date: 20050328
  Serious: Yes (Death, Hospitalization)
  Sender: FDA-Public Use
  Company Number: ATO-04-0785

PATIENT
  Age: 77 Year
  Sex: Female
  Weight: 73.4827 kg

DRUGS (7)
  1. TRISENOX [Suspect]
     Indication: ACUTE PROMYELOCYTIC LEUKAEMIA
     Dosage: (10 MG, QD 5X/WK), IVI
     Route: 042
     Dates: start: 20040611, end: 20040917
  2. VIOXX [Concomitant]
  3. REMERON [Concomitant]
  4. MULTIVITAMIN [Concomitant]
  5. CALTRATE [Concomitant]
  6. FOLIC ACID [Concomitant]
  7. ASPIRIN [Concomitant]

REACTIONS (1)
  - GASTROINTESTINAL HAEMORRHAGE [None]
